FAERS Safety Report 25043006 (Version 1)
Quarter: 2025Q1

REPORT INFORMATION
  Report Type: Spontaneous
  Country: JP (occurrence: JP)
  Receive Date: 20250305
  Receipt Date: 20250305
  Transmission Date: 20250409
  Serious: Yes (Hospitalization, Other)
  Sender: MERCK SHARP & DOHME LLC
  Company Number: JP-MSD-M2023-08423

PATIENT
  Age: 73 Year
  Sex: Male

DRUGS (3)
  1. KEYTRUDA [Suspect]
     Active Substance: PEMBROLIZUMAB
     Indication: Oesophageal carcinoma
     Dosage: DOSE DESCRIPTION : 200 MILLIGRAM, Q3W?DAILY DOSE : 9.4 MILLIGRAM?REGIMEN DOSE : 200  MILLIGRAM
     Route: 041
     Dates: start: 20220521, end: 20220521
  2. CISPLATIN [Suspect]
     Active Substance: CISPLATIN
     Indication: Oesophageal carcinoma
     Dosage: DOSE DESCRIPTION : 80 MILLIGRAM/SQ. METER, Q3W?DAILY DOSE : 3.76 MILLIGRAM/SQ. METER?REGIMEN DOSE...
     Route: 041
     Dates: start: 20220521, end: 20220615
  3. FLUOROURACIL [Suspect]
     Active Substance: FLUOROURACIL
     Indication: Oesophageal carcinoma
     Dosage: DOSE DESCRIPTION : 4000 MILLIGRAM/SQ. METER, Q3W?DAILY DOSE : 188 MILLIGRAM/SQ. METER?REGIMEN DOS...
     Route: 041
     Dates: start: 20220521, end: 20220615

REACTIONS (4)
  - Hyponatraemia [Recovered/Resolved]
  - Malignant neoplasm progression [Unknown]
  - Hypokalaemia [Recovered/Resolved]
  - Neutropenia [Recovered/Resolved]

NARRATIVE: CASE EVENT DATE: 20220615
